FAERS Safety Report 9909214 (Version 3)
Quarter: 2014Q1

REPORT INFORMATION
  Report Type: Spontaneous
  Country: US (occurrence: US)
  Receive Date: 20140219
  Receipt Date: 20140312
  Transmission Date: 20141002
  Serious: No
  Sender: FDA-Public Use
  Company Number: US-009507513-1402USA007819

PATIENT
  Age: 65 Year
  Sex: Male
  Weight: 90.7 kg

DRUGS (5)
  1. TRUSOPT [Suspect]
     Indication: INTRAOCULAR PRESSURE INCREASED
     Dosage: UNK
     Route: 047
     Dates: start: 201308
  2. TRUSOPT [Suspect]
     Indication: OCULAR HYPERTENSION
  3. ALPHAGAN [Suspect]
     Indication: INTRAOCULAR PRESSURE INCREASED
     Dosage: UNK
     Route: 047
     Dates: start: 201308
  4. ALPHAGAN [Suspect]
     Indication: OCULAR HYPERTENSION
  5. FLUOCINONIDE [Suspect]
     Dosage: UNK

REACTIONS (3)
  - Eye operation [Unknown]
  - Intraocular pressure increased [Unknown]
  - Drug ineffective [Unknown]
